FAERS Safety Report 8142863-2 (Version None)
Quarter: 2012Q1

REPORT INFORMATION
  Report Type: 
  Country: None (occurrence: None)
  Receive Date: 20120216
  Receipt Date: 20110913
  Transmission Date: 20120608
  Serious: Yes (Hospitalization)
  Sender: FDA-Public Use
  Company Number: PHHY2011FR65910

PATIENT
  Sex: Male
  Weight: 68 kg

DRUGS (6)
  1. LOXEN [Concomitant]
     Dosage: 2 DF
     Route: 048
  2. RASILEZ HCT [Suspect]
     Indication: HYPERTENSION
     Dosage: 1 DF, QD
     Route: 048
     Dates: start: 20101117, end: 20110701
  3. PREVISCAN [Concomitant]
     Dosage: 0.75 DF, PER DAY
     Route: 048
  4. OMIX [Concomitant]
     Route: 048
  5. HYPERIUM [Concomitant]
     Dosage: 10 MG, QD
     Route: 048
  6. RABEPRAZOLE SODIUM [Concomitant]
     Dosage: 10 MG, QD
     Route: 048

REACTIONS (5)
  - WHITE BLOOD CELL COUNT INCREASED [None]
  - BLOOD COUNT ABNORMAL [None]
  - MYELODYSPLASTIC SYNDROME TRANSFORMATION [None]
  - BONE MARROW FAILURE [None]
  - PLATELET COUNT DECREASED [None]
